FAERS Safety Report 5412430-X (Version None)
Quarter: 2007Q3

REPORT INFORMATION
  Report Type: 
  Country: None (occurrence: None)
  Receive Date: 20070813
  Receipt Date: 20070808
  Transmission Date: 20080115
  Serious: Yes (Life-Threatening)
  Sender: FDA-Public Use
  Company Number: PT-ASTRAZENECA-2007AC01503

PATIENT
  Age: 71 Year
  Sex: Male

DRUGS (3)
  1. ROPIVACAINE [Suspect]
     Indication: EPIDURAL ANAESTHESIA
     Route: 008
  2. MORPHINE [Concomitant]
     Indication: EPIDURAL ANAESTHESIA
     Dosage: LOADING DOSE
     Route: 008
  3. MORPHINE [Concomitant]
     Route: 008

REACTIONS (10)
  - CARDIAC FAILURE [None]
  - DEPRESSED LEVEL OF CONSCIOUSNESS [None]
  - DILATATION VENTRICULAR [None]
  - HAEMODYNAMIC INSTABILITY [None]
  - LEFT ATRIAL DILATATION [None]
  - METABOLIC ACIDOSIS [None]
  - OLIGURIA [None]
  - RESPIRATORY ACIDOSIS [None]
  - THERAPEUTIC RESPONSE INCREASED [None]
  - VASCULAR RESISTANCE SYSTEMIC DECREASED [None]
